FAERS Safety Report 8992720 (Version 1)
Quarter: 2013Q1

REPORT INFORMATION
  Report Type: Spontaneous
  Country: JP (occurrence: JP)
  Receive Date: 20130101
  Receipt Date: 20130101
  Transmission Date: 20140127
  Serious: Yes (Other)
  Sender: FDA-Public Use
  Company Number: JP-ROCHE-1173183

PATIENT
  Age: 79 Year
  Sex: Male
  Weight: 42 kg

DRUGS (3)
  1. ROCEPHIN [Suspect]
     Indication: PNEUMONIA
     Route: 041
     Dates: start: 20121029, end: 20121105
  2. HANP [Concomitant]
     Indication: CARDIAC FAILURE
     Route: 041
     Dates: start: 20121101, end: 20121105
  3. LASIX [Concomitant]
     Indication: CARDIAC FAILURE
     Route: 048
     Dates: start: 20121105, end: 20121106

REACTIONS (2)
  - Renal disorder [Recovering/Resolving]
  - Tubulointerstitial nephritis [Recovering/Resolving]
